FAERS Safety Report 4665047-9 (Version None)
Quarter: 2005Q2

REPORT INFORMATION
  Report Type: 
  Country: None (occurrence: None)
  Receive Date: 20050518
  Receipt Date: 20050414
  Transmission Date: 20051028
  Serious: Yes (Other)
  Sender: FDA-Public Use
  Company Number: PHBS2005IL05266

PATIENT
  Age: 72 Year
  Sex: Male

DRUGS (2)
  1. DEXAMETHASONE [Concomitant]
     Route: 065
  2. AREDIA [Suspect]
     Indication: MULTIPLE MYELOMA
     Dosage: 90 MG, QMO
     Route: 042
     Dates: start: 20000501

REACTIONS (3)
  - ASEPTIC NECROSIS BONE [None]
  - DENTAL PROSTHESIS USER [None]
  - IMPLANT SITE REACTION [None]
